FAERS Safety Report 17980274 (Version 2)
Quarter: 2020Q3

REPORT INFORMATION
  Report Type: Spontaneous
  Country: US (occurrence: US)
  Receive Date: 20200703
  Receipt Date: 20200820
  Transmission Date: 20201103
  Serious: Yes (Other)
  Sender: FDA-Public Use
  Company Number: US-009507513-2006USA009524

PATIENT
  Age: 71 Year
  Sex: Male
  Weight: 70.3 kg

DRUGS (8)
  1. KIRKLAND SIGNATURE NIGHTTIME SLEEP AID [Concomitant]
     Indication: ROUTINE HEALTH MAINTENANCE
     Dosage: REPORTED AS KIRKLAND SLEEP AID, UNK
  2. SINEMET [Suspect]
     Active Substance: CARBIDOPA\LEVODOPA
     Indication: PARKINSON^S DISEASE
     Dosage: UNK
  3. AMANTADINE. [Suspect]
     Active Substance: AMANTADINE HYDROCHLORIDE
     Dosage: 274 MG 1X/DAY BED TIME
     Dates: start: 2020
  4. AMANTADINE. [Suspect]
     Active Substance: AMANTADINE HYDROCHLORIDE
     Indication: DYSKINESIA
     Dosage: 137 MILLIGRAM, 1X/DAY BEDTIME
     Route: 048
     Dates: start: 20200206, end: 20200212
  5. OXYBUTYNIN. [Concomitant]
     Active Substance: OXYBUTYNIN CHLORIDE
     Indication: BLADDER DISORDER
     Dosage: UNK
  6. TAMSULOSIN HYDROCHLORIDE. [Concomitant]
     Active Substance: TAMSULOSIN HYDROCHLORIDE
     Indication: BLADDER DISORDER
     Dosage: 0.4 MILLIGRAM
  7. AMANTADINE. [Suspect]
     Active Substance: AMANTADINE HYDROCHLORIDE
     Indication: DYSKINESIA
     Dosage: 274 MG 1X/DAY BEDTIME
     Route: 048
     Dates: start: 20200213
  8. AMANTADINE. [Suspect]
     Active Substance: AMANTADINE HYDROCHLORIDE
     Dosage: 274 MG 1X/DAY BEDTIME
     Dates: start: 2020, end: 2020

REACTIONS (18)
  - Balance disorder [Recovered/Resolved]
  - Muscle strength abnormal [Not Recovered/Not Resolved]
  - Asthenia [Recovered/Resolved]
  - Neurological symptom [Unknown]
  - Fear of falling [Unknown]
  - Arthralgia [Not Recovered/Not Resolved]
  - Taste disorder [Not Recovered/Not Resolved]
  - Myalgia [Unknown]
  - Pain in extremity [Not Recovered/Not Resolved]
  - Muscle rigidity [Unknown]
  - Dizziness [Recovered/Resolved]
  - Dysgeusia [Not Recovered/Not Resolved]
  - Muscle contractions involuntary [Unknown]
  - Parkinson^s disease [Unknown]
  - Hypopnoea [Not Recovered/Not Resolved]
  - Feeling abnormal [Recovered/Resolved]
  - Tremor [Recovering/Resolving]
  - Dry mouth [Not Recovered/Not Resolved]

NARRATIVE: CASE EVENT DATE: 202002
